FAERS Safety Report 12925692 (Version 1)
Quarter: 2016Q4

REPORT INFORMATION
  Report Type: Spontaneous
  Country: CN (occurrence: CN)
  Receive Date: 20161109
  Receipt Date: 20161109
  Transmission Date: 20170207
  Serious: Yes (Other)
  Sender: FDA-Public Use
  Company Number: CN-PFIZER INC-2016520363

PATIENT
  Age: 63 Year
  Sex: Female
  Weight: 59 kg

DRUGS (1)
  1. LIPITOR [Suspect]
     Active Substance: ATORVASTATIN CALCIUM
     Dosage: 20 UG, 1X/DAY
     Route: 048
     Dates: start: 20160728, end: 20160809

REACTIONS (1)
  - Urinary retention [Recovering/Resolving]

NARRATIVE: CASE EVENT DATE: 20160731
